FAERS Safety Report 7105697-3 (Version None)
Quarter: 2010Q4

REPORT INFORMATION
  Report Type: 
  Country: None (occurrence: None)
  Receive Date: 20101116
  Receipt Date: 20101102
  Transmission Date: 20110411
  Serious: Yes (Other)
  Sender: FDA-Public Use
  Company Number: PHHY2010JP74769

PATIENT
  Sex: Female
  Weight: 56 kg

DRUGS (14)
  1. EXJADE [Suspect]
     Indication: IRON OVERLOAD
     Dosage: 1000 MG DAILY
     Route: 048
     Dates: start: 20100701, end: 20100901
  2. DIOVAN [Concomitant]
     Dosage: 80 MG
     Route: 048
     Dates: start: 20100701
  3. CALFINA [Concomitant]
     Dosage: 05 NG
     Route: 048
     Dates: start: 20100701
  4. ATENOLOL [Concomitant]
     Dosage: 50 MG
     Route: 048
     Dates: start: 20100701
  5. EBASTINE [Concomitant]
     Dosage: 10 MG
     Route: 048
     Dates: start: 20100701
  6. LIPITOR [Concomitant]
  7. CELTECT [Concomitant]
     Dosage: 60 MG
     Route: 048
     Dates: start: 20100701
  8. ISCOTIN [Concomitant]
     Dosage: 300 MG
     Route: 048
     Dates: start: 20100701
  9. DAIPHEN [Concomitant]
     Dosage: 1 MG
     Route: 048
     Dates: start: 20100701
  10. ITRIZOLE [Concomitant]
     Dosage: 10 ML
     Route: 048
     Dates: start: 20100701
  11. FAMOSTAGINE [Concomitant]
     Dosage: 40 MG
     Route: 048
     Dates: start: 20100701
  12. MAGMITT [Concomitant]
     Dosage: 990 MG
     Route: 048
     Dates: start: 20100701
  13. FUROSEMIDE [Concomitant]
     Dosage: 40 MG
     Route: 048
     Dates: start: 20100701
  14. GLAKAY [Concomitant]
     Dosage: 45 MG
     Route: 048
     Dates: start: 20100701

REACTIONS (8)
  - BASOPHIL COUNT INCREASED [None]
  - C-REACTIVE PROTEIN INCREASED [None]
  - EPIGASTRIC DISCOMFORT [None]
  - INFECTION [None]
  - INFLAMMATION [None]
  - MONOCYTE COUNT INCREASED [None]
  - NEUTROPENIA [None]
  - THROMBOCYTOPENIA [None]
